FAERS Safety Report 9139447 (Version 3)
Quarter: 2013Q2

REPORT INFORMATION
  Report Type: Spontaneous
  Country: US (occurrence: US)
  Receive Date: 20130305
  Receipt Date: 20130421
  Transmission Date: 20140414
  Serious: No
  Sender: FDA-Public Use
  Company Number: US-ROXANE LABORATORIES, INC.-2013-RO-00347RO

PATIENT
  Age: 37 Year
  Sex: Male
  Weight: 73 kg

DRUGS (6)
  1. AZATHIOPRINE [Suspect]
     Indication: COLITIS ULCERATIVE
     Dosage: 150 MG
     Route: 048
     Dates: start: 201208
  2. BUDESONIDE [Concomitant]
     Indication: COLITIS ULCERATIVE
     Dates: start: 201208, end: 201302
  3. PROAIR HFA [Concomitant]
     Indication: ASTHMA
     Dosage: 90 MCG
     Route: 055
  4. LANSOPRAZOLE [Concomitant]
     Indication: HIATUS HERNIA
     Dosage: 30 MG
  5. LANSOPRAZOLE [Concomitant]
     Indication: GASTROOESOPHAGEAL REFLUX DISEASE
  6. VITAMIN D3 [Concomitant]
     Indication: VITAMIN D DEFICIENCY

REACTIONS (2)
  - Staphylococcal infection [Recovered/Resolved]
  - Furuncle [Recovered/Resolved]
